FAERS Safety Report 7482136-4 (Version None)
Quarter: 2011Q2

REPORT INFORMATION
  Report Type: 
  Country: None (occurrence: None)
  Receive Date: 20110516
  Receipt Date: 20110513
  Transmission Date: 20111010
  Serious: Yes (Other)
  Sender: FDA-Public Use
  Company Number: US-PFIZER INC-2011103685

PATIENT
  Sex: Male
  Weight: 104 kg

DRUGS (4)
  1. LORAZEPAM [Concomitant]
     Indication: ANXIETY
     Dosage: 1 MG, 2X/DAY
  2. GEODON [Suspect]
     Indication: PSYCHOTIC DISORDER
     Dosage: 80 MG, 1X/DAY
     Route: 048
  3. GEODON [Suspect]
     Dosage: 60 MG, 2X/DAY
     Route: 048
  4. GEODON [Suspect]
     Dosage: 60 MG, 1X/DAY
     Route: 048

REACTIONS (3)
  - INCORRECT DOSE ADMINISTERED [None]
  - FEELING ABNORMAL [None]
  - THINKING ABNORMAL [None]
